FAERS Safety Report 20816047 (Version 1)
Quarter: 2022Q2

REPORT INFORMATION
  Report Type: Spontaneous
  Country: ES (occurrence: ES)
  Receive Date: 20220511
  Receipt Date: 20220511
  Transmission Date: 20220721
  Serious: Yes (Other)
  Sender: FDA-Public Use
  Company Number: ES-FERRINGPH-2022FE01982

PATIENT
  Age: 62 Year

DRUGS (2)
  1. MESALAMINE [Suspect]
     Active Substance: MESALAMINE
     Indication: Proctitis ulcerative
     Dosage: UNK
     Route: 048
     Dates: start: 2020, end: 2020
  2. MESALAMINE [Suspect]
     Active Substance: MESALAMINE
     Dosage: UNK
     Route: 061
     Dates: start: 2018, end: 2020

REACTIONS (6)
  - Proctitis ulcerative [Recovered/Resolved]
  - Epistaxis [Recovered/Resolved]
  - Drug intolerance [Recovered/Resolved]
  - Neck pain [Recovered/Resolved]
  - Aphthous ulcer [Recovered/Resolved]
  - Myalgia [Recovered/Resolved]

NARRATIVE: CASE EVENT DATE: 20200101
